FAERS Safety Report 8524770-6 (Version None)
Quarter: 2012Q3

REPORT INFORMATION
  Report Type: 
  Country: None (occurrence: None)
  Receive Date: 20120710
  Receipt Date: 20120627
  Transmission Date: 20120928
  Serious: Yes (Hospitalization)
  Sender: FDA-Public Use
  Company Number: 2012MA008254

PATIENT
  Age: 57 Year
  Sex: Male

DRUGS (2)
  1. CISPLATIN [Concomitant]
  2. VINORELBINE [Suspect]
     Indication: NON-SMALL CELL LUNG CANCER
     Dosage: IV
     Route: 042
     Dates: start: 20120501, end: 20120619

REACTIONS (8)
  - WRONG TECHNIQUE IN DRUG USAGE PROCESS [None]
  - INFUSION SITE PRURITUS [None]
  - INCORRECT DRUG ADMINISTRATION DURATION [None]
  - INFUSION SITE VESICLES [None]
  - NEUTROPENIC SEPSIS [None]
  - SKIN TIGHTNESS [None]
  - INFUSION SITE PAIN [None]
  - INFUSION SITE ERYTHEMA [None]
